FAERS Safety Report 6390402-9 (Version None)
Quarter: 2009Q4

REPORT INFORMATION
  Report Type: 
  Country: None (occurrence: None)
  Receive Date: 20091006
  Receipt Date: 20090928
  Transmission Date: 20100525
  Serious: Yes (Hospitalization)
  Sender: FDA-Public Use
  Company Number: JP-MERCK-0910USA00279

PATIENT
  Age: 68 Year
  Sex: Female

DRUGS (1)
  1. PEPCID [Suspect]
     Route: 048

REACTIONS (1)
  - RENAL FAILURE ACUTE [None]
